FAERS Safety Report 24425690 (Version 1)
Quarter: 2024Q4

REPORT INFORMATION
  Report Type: Spontaneous
  Country: US (occurrence: US)
  Receive Date: 20241011
  Receipt Date: 20241011
  Transmission Date: 20250115
  Serious: Yes (Death, Life-Threatening, Hospitalization)
  Sender: HETERO
  Company Number: US-HETERO-HET2024US03490

PATIENT
  Age: 86 Year
  Sex: Male

DRUGS (2)
  1. METOPROLOL [Suspect]
     Active Substance: METOPROLOL
     Indication: Product used for unknown indication
     Dosage: UNK
     Route: 065
  2. OXYGEN [Concomitant]
     Active Substance: OXYGEN
     Indication: Chronic obstructive pulmonary disease
     Dosage: UNK
     Route: 065

REACTIONS (7)
  - Encephalopathy [Fatal]
  - BRASH syndrome [Fatal]
  - Respiratory failure [Fatal]
  - Aspiration [Fatal]
  - Dehydration [Fatal]
  - Vomiting [Fatal]
  - Constipation [Fatal]
